FAERS Safety Report 23565717 (Version 1)
Quarter: 2024Q1

REPORT INFORMATION
  Report Type: Spontaneous
  Country: US (occurrence: None)
  Receive Date: 20240223
  Receipt Date: 20240223
  Transmission Date: 20240410
  Serious: Yes (Disabling, Other)
  Sender: FDA-Public Use
  Company Number: None

PATIENT
  Age: 68 Year
  Sex: Female

DRUGS (23)
  1. TRULICITY [Suspect]
     Active Substance: DULAGLUTIDE
     Indication: Weight decreased
     Dosage: FREQUENCY : WEEKLY;?
     Dates: end: 2023
  2. TRULICITY [Suspect]
     Active Substance: DULAGLUTIDE
     Indication: Blood insulin increased
  3. LEVOTHYROXINE [Concomitant]
     Active Substance: LEVOTHYROXINE\LEVOTHYROXINE SODIUM
  4. VALACYCLOVIR HYDROCHLORIDE [Concomitant]
     Active Substance: VALACYCLOVIR HYDROCHLORIDE
  5. OMEPRAZOLE [Concomitant]
     Active Substance: OMEPRAZOLE
  6. GLIPIZIDE XL [Concomitant]
     Active Substance: GLIPIZIDE
  7. NADOLOL [Concomitant]
     Active Substance: NADOLOL
  8. LOSARTAN [Concomitant]
     Active Substance: LOSARTAN
  9. PRAVASTATIN SODIUM [Concomitant]
     Active Substance: PRAVASTATIN SODIUM
  10. POTASSIUM CHLORIDE [Concomitant]
     Active Substance: POTASSIUM CHLORIDE
  11. ANASTROZOLE [Concomitant]
     Active Substance: ANASTROZOLE
  12. NOVOLOG [Concomitant]
     Active Substance: INSULIN ASPART
  13. BASAGLAR KWIKPEN [Concomitant]
     Active Substance: INSULIN GLARGINE
  14. Centrum Silver women 50+ Multivitamin [Concomitant]
  15. PROBIOTICS NOS [Concomitant]
     Active Substance: PROBIOTICS NOS
  16. VITAMIN E [Concomitant]
     Active Substance: .ALPHA.-TOCOPHEROL
  17. VITAMIN D3 [Concomitant]
     Active Substance: CHOLECALCIFEROL
  18. COLLAGEN [Concomitant]
     Active Substance: COLLAGEN
  19. BIOTIN [Concomitant]
     Active Substance: BIOTIN
  20. KERATIN [Concomitant]
     Active Substance: KERATIN
  21. Hyaluronic acid + Saw palmetto [Concomitant]
  22. ZINC [Concomitant]
     Active Substance: PYRITHIONE ZINC\ZINC\ZINC CHLORIDE
  23. TUMS [Concomitant]
     Active Substance: CALCIUM CARBONATE

REACTIONS (5)
  - Abdominal pain upper [None]
  - Vomiting [None]
  - Abdominal pain upper [None]
  - Feeding disorder [None]
  - Hyperhidrosis [None]

NARRATIVE: CASE EVENT DATE: 20220101
